FAERS Safety Report 9214748 (Version 2)
Quarter: 2013Q2

REPORT INFORMATION
  Report Type: Report from Study
  Country: BR (occurrence: BR)
  Receive Date: 20130405
  Receipt Date: 20130417
  Transmission Date: 20140414
  Serious: Yes (Death)
  Sender: FDA-Public Use
  Company Number: BR-AMGEN-BRACT2013023591

PATIENT
  Age: 85 Year
  Sex: Female

DRUGS (7)
  1. DENOSUMAB [Suspect]
     Indication: OSTEOPOROSIS POSTMENOPAUSAL
     Dosage: 1 ML, Q6MO
     Route: 058
     Dates: start: 20050411, end: 20121010
  2. SERETIDE [Concomitant]
     Dosage: UNK
     Dates: start: 20110710
  3. PREDNISONE [Concomitant]
     Dosage: 40 MG, UNK
     Dates: start: 20130128
  4. OMEPRAZOLE [Concomitant]
     Dosage: 40 MG, QD
  5. NORTRIPTYLIN [Concomitant]
     Dosage: 40 MG, QD
     Dates: start: 20130129
  6. CLONAZEPAM [Concomitant]
     Dosage: 1 MG, QD
     Dates: start: 20090904
  7. CALCIUM CARBONATE AND VITAMIN D [Concomitant]
     Dosage: UNK
     Dates: start: 20050411

REACTIONS (1)
  - Death [Fatal]
